FAERS Safety Report 19115961 (Version 3)
Quarter: 2021Q3

REPORT INFORMATION
  Report Type: Spontaneous
  Country: US (occurrence: US)
  Receive Date: 20210409
  Receipt Date: 20210715
  Transmission Date: 20211014
  Serious: Yes (Other)
  Sender: FDA-Public Use
  Company Number: US-JNJFOC-20210400251

PATIENT
  Age: 66 Year
  Sex: Female

DRUGS (10)
  1. METFORMIN [Concomitant]
     Active Substance: METFORMIN HYDROCHLORIDE
  2. ATORVASTATIN [Concomitant]
     Active Substance: ATORVASTATIN
  3. POTASSIUM [Concomitant]
     Active Substance: POTASSIUM
  4. CIPROFLOXACIN HCL [Concomitant]
     Active Substance: CIPROFLOXACIN HYDROCHLORIDE
     Dosage: EVERY 12 HOURS FOR 10 DAYS
  5. XARELTO [Suspect]
     Active Substance: RIVAROXABAN
     Indication: THROMBOSIS
     Dosage: FOR 21 DAYS
     Route: 048
     Dates: start: 20200608, end: 20200629
  6. XARELTO [Suspect]
     Active Substance: RIVAROXABAN
     Route: 048
     Dates: start: 20200629, end: 20210104
  7. ELIQUIS [Suspect]
     Active Substance: APIXABAN
  8. HYDROCHLOROTHIAZIDE. [Concomitant]
     Active Substance: HYDROCHLOROTHIAZIDE
  9. METHYLPREDNISOLONE. [Concomitant]
     Active Substance: METHYLPREDNISOLONE
     Dosage: TAKE 6 TABLETS ON DAY 1 AS DIRECTED ON PACKAGE AND DECREASE BY 1 TAB EACH DAY
  10. AMLODIPINE BESILATE [Concomitant]
     Active Substance: AMLODIPINE BESYLATE
     Dosage: 10?20 MG

REACTIONS (18)
  - Rash [Recovering/Resolving]
  - Scab [Unknown]
  - Thrombosis [Not Recovered/Not Resolved]
  - Rash pruritic [Unknown]
  - Hypoaesthesia [Unknown]
  - Thrombosis [Unknown]
  - Pruritus [Recovering/Resolving]
  - Wound haemorrhage [Unknown]
  - Pain in extremity [Unknown]
  - Exfoliative rash [Unknown]
  - Otorrhoea [Unknown]
  - Skin fissures [Recovering/Resolving]
  - Skin fissures [Unknown]
  - Arthritis [Unknown]
  - Ear disorder [Recovering/Resolving]
  - Skin burning sensation [Unknown]
  - Ear swelling [Recovering/Resolving]
  - Skin discolouration [Unknown]

NARRATIVE: CASE EVENT DATE: 20201111
